FAERS Safety Report 10732000 (Version 1)
Quarter: 2015Q1

REPORT INFORMATION
  Report Type: Spontaneous
  Country: US (occurrence: US)
  Receive Date: 20150123
  Receipt Date: 20150123
  Transmission Date: 20150721
  Serious: No
  Sender: FDA-Public Use
  Company Number: US-ASTRAZENECA-2015SE04169

PATIENT
  Sex: Female
  Weight: 68 kg

DRUGS (3)
  1. SEROQUEL XR [Suspect]
     Active Substance: QUETIAPINE FUMARATE
     Indication: SLEEP DISORDER
     Route: 048
     Dates: start: 201411
  2. IMPAL [Concomitant]
  3. SHOT FOR HER ARTHRITIS [Concomitant]
     Indication: ARTHRITIS
     Route: 050

REACTIONS (3)
  - Hypoaesthesia [Not Recovered/Not Resolved]
  - Product use issue [Unknown]
  - Hearing impaired [Not Recovered/Not Resolved]
